FAERS Safety Report 9192594 (Version 1)
Quarter: 2013Q1

REPORT INFORMATION
  Report Type: Spontaneous
  Country: US (occurrence: US)
  Receive Date: 20130327
  Receipt Date: 20130327
  Transmission Date: 20140127
  Serious: Yes (Disabling, Other)
  Sender: FDA-Public Use
  Company Number: US-PFIZER INC-2013098376

PATIENT
  Age: 46 Year
  Sex: Male
  Weight: 72.56 kg

DRUGS (3)
  1. CHANTIX [Suspect]
     Indication: SMOKING CESSATION THERAPY
     Dosage: 0.5 MG, 1X/DAY
     Route: 048
     Dates: start: 2010, end: 2010
  2. ATORVASTATIN [Concomitant]
     Dosage: UNK
  3. TAMSULOSIN [Concomitant]
     Dosage: UNK

REACTIONS (1)
  - Mental disorder [Unknown]
